FAERS Safety Report 12232189 (Version 1)
Quarter: 2016Q2

REPORT INFORMATION
  Report Type: Spontaneous
  Country: US (occurrence: US)
  Receive Date: 20160401
  Receipt Date: 20160401
  Transmission Date: 20160815
  Serious: No
  Sender: FDA-Public Use
  Company Number: US-PFIZER INC-2016148129

PATIENT
  Age: 58 Year
  Sex: Female
  Weight: 91 kg

DRUGS (4)
  1. LYRICA [Suspect]
     Active Substance: PREGABALIN
     Indication: FIBROMYALGIA
     Dosage: 50 MG, UNK
     Route: 048
  2. LYRICA [Suspect]
     Active Substance: PREGABALIN
     Dosage: 100 MG, 3X/DAY
     Route: 048
  3. SOMA [Concomitant]
     Active Substance: CARISOPRODOL
  4. LYRICA [Suspect]
     Active Substance: PREGABALIN
     Dosage: 75 MG, UNK
     Route: 048

REACTIONS (5)
  - Intentional product misuse [Unknown]
  - Stress [Unknown]
  - Myalgia [Unknown]
  - Neuralgia [Unknown]
  - Drug ineffective [Unknown]
